FAERS Safety Report 8162801-6 (Version None)
Quarter: 2012Q1

REPORT INFORMATION
  Report Type: 
  Country: None (occurrence: None)
  Receive Date: 20120224
  Receipt Date: 20120210
  Transmission Date: 20120608
  Serious: Yes (Hospitalization, Other)
  Sender: FDA-Public Use
  Company Number: CA-RANBAXY-2010US-33335

PATIENT
  Age: 53 Year
  Sex: Male

DRUGS (5)
  1. FLUOXETINE [Interacting]
     Indication: SLEEP APNOEA SYNDROME
  2. NITRAZEPAM [Suspect]
     Indication: SLEEP APNOEA SYNDROME
     Dosage: 10 MG HS
     Route: 065
  3. NITRAZEPAM TABLETS BP 5MG [Suspect]
     Indication: SLEEP APNOEA SYNDROME
     Dosage: UNK
     Route: 048
  4. CLARITHROMYCIN [Interacting]
     Indication: RESPIRATORY TRACT INFECTION
     Dosage: 250 MG, BID
     Route: 065
  5. FLUOXETINE [Interacting]
     Indication: DEPRESSION
     Dosage: 80 MG HS
     Route: 065

REACTIONS (8)
  - TOXICITY TO VARIOUS AGENTS [None]
  - PSYCHOTIC DISORDER [None]
  - SOMNOLENCE [None]
  - OVERDOSE [None]
  - DELIRIUM [None]
  - PNEUMONIA [None]
  - DRUG INTERACTION [None]
  - DEPRESSION [None]
